FAERS Safety Report 4398379-2 (Version None)
Quarter: 2004Q3

REPORT INFORMATION
  Report Type: 
  Country: None (occurrence: None)
  Receive Date: 20040713
  Receipt Date: 20040701
  Transmission Date: 20050211
  Serious: Yes (Other)
  Sender: FDA-Public Use
  Company Number: 2002126378IE

PATIENT
  Age: 46 Year
  Sex: Female
  Weight: 58 kg

DRUGS (11)
  1. GENOTROPIN [Suspect]
     Indication: HYPOPITUITARISM
     Dosage: 1.1 + 1.2 + 1 MG, QD, SUBCUTANEOUS
     Route: 058
     Dates: start: 19980529, end: 20020702
  2. GENOTROPIN [Suspect]
     Indication: HYPOPITUITARISM
     Dosage: 1.1 + 1.2 + 1 MG, QD, SUBCUTANEOUS
     Route: 058
     Dates: start: 20020702, end: 20020724
  3. GENOTROPIN [Suspect]
     Indication: HYPOPITUITARISM
     Dosage: 1.1 + 1.2 + 1 MG, QD, SUBCUTANEOUS
     Route: 058
     Dates: start: 20020724
  4. THEOPHYLLINE [Concomitant]
  5. DESMOPRESSIN (DESMOPRESSIN) [Concomitant]
  6. HYDROCORTISONE [Concomitant]
  7. PREMARIN [Concomitant]
  8. LEVOTHYROXINE SODIUM [Concomitant]
  9. LOSEC [Concomitant]
  10. FERROUS FUMARATE [Concomitant]
  11. BROMOCRIPTINE MESYLATE [Concomitant]

REACTIONS (4)
  - ARTHRALGIA [None]
  - INSULIN-LIKE GROWTH FACTOR DECREASED [None]
  - MENINGIOMA [None]
  - NEOPLASM RECURRENCE [None]
